FAERS Safety Report 22315478 (Version 3)
Quarter: 2023Q2

REPORT INFORMATION
  Report Type: Spontaneous
  Country: US (occurrence: US)
  Receive Date: 20230512
  Receipt Date: 20230628
  Transmission Date: 20230721
  Serious: No
  Sender: FDA-Public Use
  Company Number: US-PFIZER INC-202300188285

PATIENT
  Age: 76 Year
  Sex: Female
  Weight: 45.351 kg

DRUGS (1)
  1. ESTRADIOL [Suspect]
     Active Substance: ESTRADIOL
     Dosage: UNK, 1X/DAY

REACTIONS (2)
  - Drug ineffective [Unknown]
  - Off label use [Unknown]
